FAERS Safety Report 6407588-X (Version None)
Quarter: 2009Q4

REPORT INFORMATION
  Report Type: 
  Country: None (occurrence: None)
  Receive Date: 20091015
  Receipt Date: 20091006
  Transmission Date: 20100525
  Serious: Yes (Hospitalization)
  Sender: FDA-Public Use
  Company Number: 020554678A

PATIENT
  Age: 51 Year
  Sex: Female

DRUGS (6)
  1. COLGATE TOTAL-CLEAN MINT [Suspect]
     Indication: DENTAL CARIES
     Dosage: PEA SIZE/2-3DAY/ORAL
     Route: 048
  2. COLGATE TOTAL-CLEAN MINT [Suspect]
     Indication: GINGIVITIS
     Dosage: PEA SIZE/2-3DAY/ORAL
     Route: 048
  3. ASPIRIN [Concomitant]
  4. TYLENOL W/ CODEINE NO. 3 [Concomitant]
  5. LASIX [Concomitant]
  6. COLGATE SESITIVE WHITENING [Suspect]
     Indication: GINGIVITIS
     Dosage: PEA SIZE/2-3DAY/ORAL
     Route: 048

REACTIONS (3)
  - ANGIOEDEMA [None]
  - COUGH [None]
  - THROAT TIGHTNESS [None]
